FAERS Safety Report 15007467 (Version 1)
Quarter: 2018Q2

REPORT INFORMATION
  Report Type: Spontaneous
  Country: JP (occurrence: JP)
  Receive Date: 20180613
  Receipt Date: 20180613
  Transmission Date: 20180711
  Serious: Yes (Death)
  Sender: FDA-Public Use
  Company Number: JP-NAPPMUNDI-GBR-2018-0056651

PATIENT
  Age: 84 Year
  Sex: Male

DRUGS (1)
  1. OXIFAST [Suspect]
     Active Substance: OXYCODONE
     Indication: OESOPHAGEAL CARCINOMA
     Route: 065

REACTIONS (5)
  - Urticaria [Unknown]
  - Purpura senile [Unknown]
  - Diarrhoea [Unknown]
  - Constipation [Unknown]
  - Oesophageal carcinoma [Fatal]

NARRATIVE: CASE EVENT DATE: 20180601
